FAERS Safety Report 7436974-4 (Version None)
Quarter: 2011Q1

REPORT INFORMATION
  Report Type: 
  Country: None (occurrence: None)
  Receive Date: 20110302
  Receipt Date: 20101123
  Transmission Date: 20110831
  Serious: No
  Sender: FDA-Public Use
  Company Number: 022756

PATIENT
  Sex: Female
  Weight: 81 kg

DRUGS (9)
  1. ASPIRIN [Concomitant]
  2. FOLIC ACID [Concomitant]
  3. BONIVA [Concomitant]
  4. METOPROLOL SUCCINATE [Concomitant]
  5. PREDNISONE [Concomitant]
  6. METHOTREXATE [Concomitant]
  7. VYTORIN [Concomitant]
  8. CIMZIA [Suspect]
     Indication: RHEUMATOID ARTHRITIS
     Dosage: TWO SHOTS, MONTHLY SUBCUTANEOUS
     Route: 058
     Dates: start: 20100601
  9. PLAVIX [Concomitant]

REACTIONS (4)
  - NAUSEA [None]
  - DRUG INEFFECTIVE [None]
  - ASTHENIA [None]
  - HANGOVER [None]
